FAERS Safety Report 25211653 (Version 3)
Quarter: 2025Q4

REPORT INFORMATION
  Report Type: Report from Study
  Country: US (occurrence: US)
  Receive Date: 20250418
  Receipt Date: 20251231
  Transmission Date: 20260117
  Serious: Yes (Hospitalization)
  Sender: JAZZ
  Company Number: US-JAZZ PHARMACEUTICALS-2025-US-009713

PATIENT
  Sex: Male

DRUGS (3)
  1. EPIDIOLEX [Suspect]
     Active Substance: CANNABIDIOL
     Indication: Lennox-Gastaut syndrome
     Dosage: 3 MILLILITER, Q6H (G-TUBE)
     Dates: start: 202109
  2. EPIDIOLEX [Suspect]
     Active Substance: CANNABIDIOL
     Dosage: 3 MILLILITER, Q6H (G-TUBE)
  3. EPIDIOLEX [Suspect]
     Active Substance: CANNABIDIOL
     Dosage: UNK

REACTIONS (2)
  - Hospitalisation [Unknown]
  - Off label use [Unknown]
